FAERS Safety Report 6788803-X (Version None)
Quarter: 2010Q2

REPORT INFORMATION
  Report Type: 
  Country: None (occurrence: None)
  Receive Date: 20100623
  Receipt Date: 20080603
  Transmission Date: 20101027
  Serious: Yes (Life-Threatening, Hospitalization)
  Sender: FDA-Public Use
  Company Number: PFIZER INC-2008038247

PATIENT
  Sex: Male
  Weight: 60.8 kg

DRUGS (1)
  1. SUTENT [Suspect]
     Indication: RENAL CELL CARCINOMA
     Dosage: DAILY: 4 WEEKS ON AND 2 WEEKS OFF
     Route: 048
     Dates: start: 20070725, end: 20070930

REACTIONS (1)
  - PANCREATITIS ACUTE [None]
